FAERS Safety Report 11029756 (Version 1)
Quarter: 2015Q2

REPORT INFORMATION
  Report Type: Spontaneous
  Country: US (occurrence: None)
  Receive Date: 20150414
  Receipt Date: 20150414
  Transmission Date: 20150821
  Serious: No
  Sender: FDA-Public Use
  Company Number: None

PATIENT
  Sex: Female

DRUGS (1)
  1. HARVONI [Suspect]
     Active Substance: LEDIPASVIR\SOFOSBUVIR
     Indication: HEPATITIS C
     Dosage: 1 TAB, DAILY, PO
     Route: 048
     Dates: start: 20150305, end: 20150410

REACTIONS (3)
  - Gait disturbance [None]
  - Somnolence [None]
  - Fatigue [None]
